FAERS Safety Report 18414972 (Version 2)
Quarter: 2020Q4

REPORT INFORMATION
  Report Type: Spontaneous
  Country: US (occurrence: US)
  Receive Date: 20201022
  Receipt Date: 20201022
  Transmission Date: 20210114
  Serious: No
  Sender: FDA-Public Use
  Company Number: US-PFIZER INC-2020407148

PATIENT
  Age: 57 Year
  Sex: Female

DRUGS (3)
  1. LYRICA [Suspect]
     Active Substance: PREGABALIN
     Dosage: 150 MG; (150 MG OF THE 300 MG OF LYRICA)
  2. DULOXETINE. [Suspect]
     Active Substance: DULOXETINE
     Dosage: UNK
  3. LORBRENA [Suspect]
     Active Substance: LORLATINIB
     Indication: LUNG NEOPLASM MALIGNANT
     Dosage: UNK

REACTIONS (8)
  - Neoplasm progression [Unknown]
  - Formication [Unknown]
  - Anxiety [Unknown]
  - Withdrawal syndrome [Unknown]
  - Fatigue [Unknown]
  - Nerve injury [Unknown]
  - Tremor [Unknown]
  - Thinking abnormal [Unknown]
